FAERS Safety Report 15430290 (Version 1)
Quarter: 2018Q3

REPORT INFORMATION
  Report Type: Report from Study
  Country: SE (occurrence: SE)
  Receive Date: 20180926
  Receipt Date: 20180926
  Transmission Date: 20181010
  Serious: Yes (Other)
  Sender: FDA-Public Use
  Company Number: SE-MYLANLABS-2018M1069857

PATIENT
  Age: 50 Year
  Sex: Male

DRUGS (1)
  1. LITHIUM. [Suspect]
     Active Substance: LITHIUM
     Indication: BIPOLAR DISORDER
     Dosage: LITHIUM DURATION AT OPERATION 14 YEARS
     Route: 065

REACTIONS (2)
  - Hyperparathyroidism [Unknown]
  - Hypercalcaemia [Recovering/Resolving]
